FAERS Safety Report 14642271 (Version 1)
Quarter: 2018Q1

REPORT INFORMATION
  Report Type: Other
  Country: US (occurrence: US)
  Receive Date: 20180315
  Receipt Date: 20180315
  Transmission Date: 20180509
  Serious: Yes (Other)
  Sender: FDA-Public Use
  Company Number: US-SIM_00811_2018

PATIENT
  Sex: Male

DRUGS (1)
  1. EARACHE [Suspect]
     Active Substance: HOMEOPATHICS
     Indication: PRODUCT USED FOR UNKNOWN INDICATION
     Dosage: NI/NI/

REACTIONS (3)
  - Ear discomfort [Unknown]
  - Condition aggravated [Unknown]
  - Deafness [Unknown]
